FAERS Safety Report 10344617 (Version 28)
Quarter: 2017Q1

REPORT INFORMATION
  Report Type: Report from Study
  Country: MX (occurrence: MX)
  Receive Date: 20140728
  Receipt Date: 20170208
  Transmission Date: 20170428
  Serious: Yes (Hospitalization, Disabling)
  Sender: FDA-Public Use
  Company Number: MX-ROCHE-1440606

PATIENT
  Age: 65 Year
  Sex: Female
  Weight: 76 kg

DRUGS (15)
  1. ROACTEMRA [Suspect]
     Active Substance: TOCILIZUMAB
     Indication: RHEUMATOID ARTHRITIS
     Route: 042
     Dates: start: 20160817
  2. DIPHENHYDRAMINE. [Concomitant]
     Active Substance: DIPHENHYDRAMINE
     Indication: PREMEDICATION
     Dosage: UNIQUE DOSE
     Route: 042
     Dates: start: 20140722, end: 20140722
  3. MABTHERA [Suspect]
     Active Substance: RITUXIMAB
     Dosage: LASTED 3 HOURS
     Route: 042
     Dates: start: 20150107
  4. KIKUZUBAM [Suspect]
     Active Substance: RITUXIMAB
     Indication: RHEUMATOID ARTHRITIS
     Route: 042
     Dates: start: 20130111
  5. ACETAMINOPHEN. [Concomitant]
     Active Substance: ACETAMINOPHEN
     Indication: PREMEDICATION
     Dosage: UNIQUE DOSE
     Route: 048
     Dates: start: 20140722, end: 20140722
  6. PREDNISONE. [Concomitant]
     Active Substance: PREDNISONE
     Route: 048
     Dates: start: 201411
  7. FOLIC ACID. [Concomitant]
     Active Substance: FOLIC ACID
     Indication: RHEUMATOID ARTHRITIS
     Route: 048
     Dates: start: 201009
  8. CORTISONE [Concomitant]
     Active Substance: CORTISONE\HYDROCORTISONE
     Route: 065
     Dates: start: 2014
  9. PREDNISONE. [Concomitant]
     Active Substance: PREDNISONE
     Route: 065
     Dates: start: 20161010, end: 20161020
  10. MABTHERA [Suspect]
     Active Substance: RITUXIMAB
     Indication: RHEUMATOID ARTHRITIS
     Dosage: 1 CYCLE EVERY 6 MONTHS?SUBSEQUENT DOSES ON: 11/NOV/2011, 14/MAY/2012, 04/NOV/2012, 22/JUL/2014, JAN/
     Route: 042
     Dates: start: 20111028
  11. PREDNISONE. [Concomitant]
     Active Substance: PREDNISONE
     Indication: RHEUMATOID ARTHRITIS
     Route: 048
     Dates: start: 201009
  12. MABTHERA [Suspect]
     Active Substance: RITUXIMAB
     Route: 042
     Dates: start: 20150708, end: 20160125
  13. KIKUZUBAM [Suspect]
     Active Substance: RITUXIMAB
     Dosage: JUST ONE DOSE TAKEN
     Route: 042
     Dates: start: 20130703, end: 20130703
  14. LEFLUNOMIDE. [Concomitant]
     Active Substance: LEFLUNOMIDE
     Indication: RHEUMATOID ARTHRITIS
     Route: 048
     Dates: start: 201009
  15. HYDROCORTISONE. [Concomitant]
     Active Substance: HYDROCORTISONE
     Indication: PREMEDICATION
     Dosage: UNIQUE DOSE
     Route: 042
     Dates: start: 20140722, end: 20140722

REACTIONS (39)
  - Emotional disorder [Recovered/Resolved]
  - Mental disorder [Recovered/Resolved]
  - Gait disturbance [Recovering/Resolving]
  - Fall [Unknown]
  - Cough [Recovered/Resolved]
  - Immunodeficiency [Recovered/Resolved]
  - Pneumonia [Recovered/Resolved]
  - Pruritus [Recovered/Resolved]
  - Hypertensive crisis [Recovered/Resolved]
  - Fatigue [Not Recovered/Not Resolved]
  - Blood calcium decreased [Unknown]
  - Paraesthesia [Recovering/Resolving]
  - Joint stiffness [Not Recovered/Not Resolved]
  - Off label use [Unknown]
  - Rash [Recovered/Resolved]
  - Dry skin [Unknown]
  - Sopor [Recovered/Resolved]
  - Hyperhidrosis [Recovered/Resolved]
  - Headache [Recovered/Resolved]
  - Fatigue [Recovering/Resolving]
  - Depression [Recovering/Resolving]
  - Influenza [Recovered/Resolved]
  - Cough [Recovered/Resolved]
  - Nodule [Not Recovered/Not Resolved]
  - Pneumonia [Recovered/Resolved]
  - Hypertension [Not Recovered/Not Resolved]
  - Arthralgia [Recovering/Resolving]
  - Arthritis [Recovering/Resolving]
  - Medication error [Unknown]
  - Serositis [Not Recovered/Not Resolved]
  - Joint crepitation [Not Recovered/Not Resolved]
  - Dysstasia [Not Recovered/Not Resolved]
  - Restlessness [Recovered/Resolved]
  - Overweight [Not Recovered/Not Resolved]
  - Pharyngitis [Recovering/Resolving]
  - Pallor [Recovered/Resolved]
  - Gastric disorder [Unknown]
  - Inflammation [Not Recovered/Not Resolved]
  - Throat irritation [Recovering/Resolving]

NARRATIVE: CASE EVENT DATE: 20111028
